FAERS Safety Report 15835039 (Version 1)
Quarter: 2019Q1

REPORT INFORMATION
  Report Type: Spontaneous
  Country: US (occurrence: US)
  Receive Date: 20190116
  Receipt Date: 20190116
  Transmission Date: 20190417
  Serious: No
  Sender: FDA-Public Use
  Company Number: US-CHILTERN-US-2018-000143

PATIENT
  Age: 48 Year
  Sex: Male

DRUGS (3)
  1. DORZOLAMIDE [Concomitant]
     Active Substance: DORZOLAMIDE
     Indication: GLAUCOMA
     Dosage: 2 GTT, BID
     Route: 047
  2. LATANOPROST. [Concomitant]
     Active Substance: LATANOPROST
     Indication: GLAUCOMA
     Dosage: 2 GTT, QD
     Route: 047
  3. RHOPRESSA [Suspect]
     Active Substance: NETARSUDIL MESYLATE
     Indication: GLAUCOMA
     Dosage: 2 GTT, QD
     Route: 047
     Dates: start: 20180315

REACTIONS (1)
  - Conjunctival hyperaemia [Recovered/Resolved]

NARRATIVE: CASE EVENT DATE: 20180315
